FAERS Safety Report 7624230-0 (Version None)
Quarter: 2011Q3

REPORT INFORMATION
  Report Type: 
  Country: None (occurrence: None)
  Receive Date: 20110720
  Receipt Date: 20110712
  Transmission Date: 20111222
  Serious: Yes (Other)
  Sender: FDA-Public Use
  Company Number: US-BRISTOL-MYERS SQUIBB COMPANY-15559172

PATIENT
  Age: 7 Decade
  Sex: Male

DRUGS (2)
  1. VITAMIN B-12 [Concomitant]
  2. GLUCOPHAGE [Suspect]
     Indication: TYPE 2 DIABETES MELLITUS
     Route: 048

REACTIONS (4)
  - ANAEMIA [None]
  - MYELOPATHY [None]
  - VITAMIN B12 DEFICIENCY [None]
  - NEUROPATHY PERIPHERAL [None]
